FAERS Safety Report 25738742 (Version 2)
Quarter: 2025Q3

REPORT INFORMATION
  Report Type: Report from Study
  Country: US (occurrence: US)
  Receive Date: 20250829
  Receipt Date: 20250922
  Transmission Date: 20251021
  Serious: Yes (Other)
  Sender: REGENERON
  Company Number: US-REGENERON PHARMACEUTICALS, INC.-2025-122374

PATIENT
  Sex: Male

DRUGS (5)
  1. PRALUENT [Suspect]
     Active Substance: ALIROCUMAB
     Indication: Type IIa hyperlipidaemia
     Dosage: 150 MG, Q2W (EVERY 2 WEEKS)
     Route: 058
     Dates: start: 20250501, end: 2025
  2. PRALUENT [Suspect]
     Active Substance: ALIROCUMAB
     Dosage: 75 MG, Q2W (EVERY 2 WEEKS)
     Route: 058
     Dates: start: 202506
  3. VITAMIN D NOS [Concomitant]
     Active Substance: CHOLECALCIFEROL\ERGOCALCIFEROL
     Indication: Product used for unknown indication
     Dosage: QD (DAILY)
  4. KRILL OIL [Concomitant]
     Active Substance: DIETARY SUPPLEMENT\KRILL OIL
     Indication: Product used for unknown indication
     Dosage: QD (DAILY)
  5. COENZYME Q10 [Concomitant]
     Active Substance: DIETARY SUPPLEMENT\UBIDECARENONE
     Indication: Product used for unknown indication
     Dosage: QD (DAILY)

REACTIONS (10)
  - Fatigue [Recovering/Resolving]
  - Dry mouth [Recovered/Resolved]
  - Thirst [Recovered/Resolved]
  - Lethargy [Recovered/Resolved]
  - Decreased appetite [Recovering/Resolving]
  - Musculoskeletal pain [Recovering/Resolving]
  - Asthenia [Recovering/Resolving]
  - Change of bowel habit [Unknown]
  - Influenza like illness [Recovering/Resolving]
  - Respiratory tract congestion [Recovering/Resolving]

NARRATIVE: CASE EVENT DATE: 20250501
